FAERS Safety Report 9638948 (Version 2)
Quarter: 2013Q4

REPORT INFORMATION
  Report Type: Spontaneous
  Country: US (occurrence: US)
  Receive Date: 20131022
  Receipt Date: 20131022
  Transmission Date: 20140711
  Serious: No
  Sender: FDA-Public Use
  Company Number: US-BRISTOL-MYERS SQUIBB COMPANY-19140136

PATIENT
  Age: 74 Year
  Sex: Male
  Weight: 96.14 kg

DRUGS (4)
  1. ELIQUIS [Suspect]
     Indication: ATRIAL FIBRILLATION
  2. MAXIDEX [Concomitant]
     Dosage: HALF OF THE TABLET
  3. COREG [Concomitant]
  4. CRESTOR [Concomitant]

REACTIONS (2)
  - Presyncope [Unknown]
  - Blood pressure increased [Unknown]
